FAERS Safety Report 25812593 (Version 3)
Quarter: 2025Q4

REPORT INFORMATION
  Report Type: Spontaneous
  Country: US (occurrence: US)
  Receive Date: 20250917
  Receipt Date: 20251111
  Transmission Date: 20260117
  Serious: No
  Sender: NOVARTIS
  Company Number: US-002147023-NVSC2025US141905

PATIENT
  Sex: Female

DRUGS (2)
  1. MEKINIST [Suspect]
     Active Substance: TRAMETINIB DIMETHYL SULFOXIDE
     Indication: Ovarian cancer
     Dosage: 2 MG, QD
     Route: 048
     Dates: start: 202508
  2. MEKINIST [Suspect]
     Active Substance: TRAMETINIB DIMETHYL SULFOXIDE
     Dosage: 20 MG, QD
     Route: 048
     Dates: start: 202508

REACTIONS (9)
  - Rash [Unknown]
  - Nasopharyngitis [Unknown]
  - Joint swelling [Unknown]
  - Diarrhoea [Unknown]
  - Visual impairment [Unknown]
  - Dysgeusia [Unknown]
  - Peripheral swelling [Unknown]
  - Pruritus [Unknown]
  - Dry skin [Unknown]
